FAERS Safety Report 22619703 (Version 1)
Quarter: 2023Q2

REPORT INFORMATION
  Report Type: Spontaneous
  Country: JP (occurrence: JP)
  Receive Date: 20230620
  Receipt Date: 20230620
  Transmission Date: 20230722
  Serious: Yes (Death, Other)
  Sender: FDA-Public Use
  Company Number: JP-TEVA-2023-JP-2898588

PATIENT
  Age: 65 Year
  Sex: Male

DRUGS (9)
  1. CARBOPLATIN [Suspect]
     Active Substance: CARBOPLATIN
     Indication: Pleural mesothelioma malignant
     Dosage: FIRST-LINE THERAPY FOR 6 COURSES
     Route: 065
  2. CARBOPLATIN [Suspect]
     Active Substance: CARBOPLATIN
     Indication: Epithelioid mesothelioma
     Dosage: SECOND LINE THERAPY FOR 8 COURSES
     Route: 065
  3. CARBOPLATIN [Suspect]
     Active Substance: CARBOPLATIN
     Dosage: WITH GEMCITABINE AS 3RD LINE THERAPY
     Route: 065
  4. CARBOPLATIN [Suspect]
     Active Substance: CARBOPLATIN
     Dosage: FOURTH-LINE THERAPY
     Route: 065
  5. PEMETREXED [Suspect]
     Active Substance: PEMETREXED
     Indication: Pleural mesothelioma malignant
     Dosage: FIRST-LINE THERAPY FOR 6 COURSES
     Route: 065
  6. PEMETREXED [Suspect]
     Active Substance: PEMETREXED
     Indication: Epithelioid mesothelioma
     Dosage: SECOND LINE THERAPY FOR 8 COURSES
     Route: 065
  7. PEMETREXED [Suspect]
     Active Substance: PEMETREXED
     Dosage: IN FOURTH-LINE THERAPY
     Route: 065
  8. GEMCITABINE [Suspect]
     Active Substance: GEMCITABINE
     Indication: Pleural mesothelioma malignant
     Dosage: IN THIRD-LINE THERAPY
     Route: 065
  9. GEMCITABINE [Suspect]
     Active Substance: GEMCITABINE
     Indication: Epithelioid mesothelioma

REACTIONS (2)
  - Drug ineffective [Fatal]
  - Haematotoxicity [Unknown]
